FAERS Safety Report 18586430 (Version 2)
Quarter: 2020Q4

REPORT INFORMATION
  Report Type: Spontaneous
  Country: JP (occurrence: JP)
  Receive Date: 20201207
  Receipt Date: 20201224
  Transmission Date: 20210114
  Serious: Yes (Other)
  Sender: FDA-Public Use
  Company Number: JP-ELI_LILLY_AND_COMPANY-JP202011011807

PATIENT
  Age: 34 Year
  Sex: Female

DRUGS (3)
  1. GEMCITABINE HYDROCHLORIDE. [Suspect]
     Active Substance: GEMCITABINE HYDROCHLORIDE
     Indication: ADRENAL GLAND CANCER METASTATIC
     Dosage: 800 MG/M2, CYCLICAL
     Route: 041
  2. MITOTANE [Suspect]
     Active Substance: MITOTANE
     Indication: ADRENAL GLAND CANCER METASTATIC
     Dosage: 3 G, DAILY
     Route: 048
  3. CAPECITABINE. [Suspect]
     Active Substance: CAPECITABINE
     Indication: ADRENAL GLAND CANCER METASTATIC
     Dosage: 1500 MG/M2, DAILY
     Route: 048

REACTIONS (5)
  - Interstitial lung disease [Recovering/Resolving]
  - Asthenia [Unknown]
  - Hyponatraemia [Unknown]
  - Off label use [Unknown]
  - Neutropenia [Recovered/Resolved]
